FAERS Safety Report 4827063-3 (Version None)
Quarter: 2005Q4

REPORT INFORMATION
  Report Type: 
  Country: None (occurrence: None)
  Receive Date: 20051014
  Receipt Date: 20050808
  Transmission Date: 20060501
  Serious: No
  Sender: FDA-Public Use
  Company Number: 2005SP000351

PATIENT
  Age: 68 Year
  Sex: Female
  Weight: 90.039 kg

DRUGS (3)
  1. LUNESTA [Suspect]
     Indication: FIBROMYALGIA
     Dosage: 1.5 MG; HS; ORAL; SEE IMAGE
     Route: 048
     Dates: start: 20050419, end: 20050422
  2. LUNESTA [Suspect]
     Indication: FIBROMYALGIA
     Dosage: 1.5 MG; HS; ORAL; SEE IMAGE
     Route: 048
     Dates: start: 20050423, end: 20050424
  3. AMBIEN [Concomitant]

REACTIONS (1)
  - INITIAL INSOMNIA [None]
